FAERS Safety Report 5477089-4 (Version None)
Quarter: 2007Q4

REPORT INFORMATION
  Report Type: 
  Country: None (occurrence: None)
  Receive Date: 20071003
  Receipt Date: 20071003
  Transmission Date: 20080405
  Serious: Yes (Congenital Anomaly)
  Sender: FDA-Public Use
  Company Number: None

PATIENT
  Sex: Male
  Weight: 21.3191 kg

DRUGS (4)
  1. ZOLOFT [Suspect]
     Indication: ANXIETY
     Dosage: 150MG  1 DAILY  PO
     Route: 048
     Dates: start: 20001130, end: 20071002
  2. ZOLOFT [Suspect]
     Indication: DEPRESSION
     Dosage: 150MG  1 DAILY  PO
     Route: 048
     Dates: start: 20001130, end: 20071002
  3. ZOLOFT [Suspect]
     Indication: OBSESSIVE-COMPULSIVE DISORDER
     Dosage: 150MG  1 DAILY  PO
     Route: 048
     Dates: start: 20001130, end: 20071002
  4. ZOLOFT [Suspect]
     Indication: TRICHOTILLOMANIA
     Dosage: 150MG  1 DAILY  PO
     Route: 048
     Dates: start: 20001130, end: 20071002

REACTIONS (5)
  - CARDIAC DISORDER [None]
  - CARDIAC PERFORATION [None]
  - CARDIAC VALVE DISEASE [None]
  - DRUG EXPOSURE DURING PREGNANCY [None]
  - HEART VALVE INCOMPETENCE [None]
